FAERS Safety Report 15483567 (Version 1)
Quarter: 2018Q4

REPORT INFORMATION
  Report Type: Spontaneous
  Country: US (occurrence: US)
  Receive Date: 20181010
  Receipt Date: 20181010
  Transmission Date: 20190205
  Serious: No
  Sender: FDA-Public Use
  Company Number: US-ROMARKLABS-2018-US-000022

PATIENT
  Age: 14 Month
  Sex: Male

DRUGS (1)
  1. ALINIA [Suspect]
     Active Substance: NITAZOXANIDE
     Indication: CRYPTOSPORIDIOSIS INFECTION
     Dosage: 100 MG EVERY TWELVE HOURS
     Route: 048
     Dates: start: 20180307, end: 20180307

REACTIONS (2)
  - Respiratory rate increased [Recovered/Resolved]
  - Pyrexia [Recovered/Resolved]

NARRATIVE: CASE EVENT DATE: 20180307
